FAERS Safety Report 8537298-4 (Version None)
Quarter: 2012Q3

REPORT INFORMATION
  Report Type: 
  Country: None (occurrence: None)
  Receive Date: 20120725
  Receipt Date: 20120716
  Transmission Date: 20120928
  Serious: Yes (Other)
  Sender: FDA-Public Use
  Company Number: US-JNJFOC-20120509567

PATIENT
  Sex: Female

DRUGS (2)
  1. STELARA [Suspect]
     Indication: PSORIASIS
     Dosage: DOSE 2
     Route: 058
     Dates: start: 20120510
  2. STELARA [Suspect]
     Dosage: DOSE 1
     Route: 058
     Dates: start: 20120412

REACTIONS (1)
  - VISION BLURRED [None]
